FAERS Safety Report 16056518 (Version 1)
Quarter: 2019Q2

REPORT INFORMATION
  Report Type: Spontaneous
  Country: US (occurrence: US)
  Receive Date: 20190309
  Receipt Date: 20190309
  Transmission Date: 20190711
  Serious: Yes (Hospitalization)
  Sender: FDA-Public Use
  Company Number: None

PATIENT
  Age: 27 Year
  Sex: Female

DRUGS (1)
  1. SKYLA [Suspect]
     Active Substance: LEVONORGESTREL
     Indication: CONTRACEPTION
     Dosage: ?          OTHER FREQUENCY:ONE IUD FOR 3 YEAR;?
     Route: 015
     Dates: start: 20170814, end: 20180625

REACTIONS (2)
  - Pregnancy with contraceptive device [None]
  - Caesarean section [None]

NARRATIVE: CASE EVENT DATE: 20180625
